FAERS Safety Report 16101471 (Version 1)
Quarter: 2019Q1

REPORT INFORMATION
  Report Type: Spontaneous
  Country: US (occurrence: US)
  Receive Date: 20190321
  Receipt Date: 20190321
  Transmission Date: 20190418
  Serious: Yes (Hospitalization)
  Sender: FDA-Public Use
  Company Number: US-ADAMAS PHARMA, LLC-2018ADA03064

PATIENT
  Age: 83 Year
  Sex: Male

DRUGS (7)
  1. GOCOVRI [Suspect]
     Active Substance: AMANTADINE
     Dosage: 137 MG, 1X/DAY NIGHTLY
     Dates: start: 201811, end: 20181125
  2. DONEPEZIL. [Concomitant]
     Active Substance: DONEPEZIL
     Dosage: 5 MG, 2X/DAY
  3. GOCOVRI [Suspect]
     Active Substance: AMANTADINE
     Dosage: 68.5 MG, 1X/DAY NIGHTLY
     Route: 048
     Dates: start: 201812, end: 20181220
  4. GOCOVRI [Suspect]
     Active Substance: AMANTADINE
     Indication: DYSKINESIA
     Dosage: 68.5 MG, 1X/DAY NIGHTLY
     Dates: start: 20181108, end: 201811
  5. ENTACAPONE. [Concomitant]
     Active Substance: ENTACAPONE
     Dosage: 1000 MG, 1X/DAY
  6. METOPROLOL TARTRATE. [Concomitant]
     Active Substance: METOPROLOL TARTRATE
     Dosage: 12.5 MG, 2X/DAY
  7. CARBIDOPA AND LEVODOPA [Concomitant]
     Active Substance: CARBIDOPA\LEVODOPA
     Dosage: 2 TABLETS, 5X/DAY

REACTIONS (8)
  - Abnormal dreams [Unknown]
  - Constipation [Unknown]
  - Nausea [Unknown]
  - Hallucination [Recovered/Resolved]
  - Gait disturbance [Unknown]
  - Somnambulism [Unknown]
  - Restless legs syndrome [Unknown]
  - Confusional state [Unknown]

NARRATIVE: CASE EVENT DATE: 201811
